FAERS Safety Report 4404242-0 (Version None)
Quarter: 2004Q3

REPORT INFORMATION
  Report Type: 
  Country: None (occurrence: None)
  Receive Date: 20040721
  Receipt Date: 20040721
  Transmission Date: 20050211
  Serious: Yes (Hospitalization)
  Sender: FDA-Public Use
  Company Number: None

PATIENT
  Age: 48 Year
  Sex: Male
  Weight: 58.7 kg

DRUGS (10)
  1. COUMADIN [Suspect]
     Indication: DEEP VEIN THROMBOSIS
     Dosage: 7.5 MG ORAL
     Route: 048
  2. COUMADIN [Suspect]
     Indication: PULMONARY EMBOLISM
     Dosage: 7.5 MG ORAL
     Route: 048
  3. DOCUSATE NA [Concomitant]
  4. SULFAMETHOXAZOLE + TRIMETHOPRIM [Concomitant]
  5. FLUOXETINE HCL [Concomitant]
  6. DILANTIN [Concomitant]
  7. CARBAMAZEPINE [Concomitant]
  8. METOCLOPRAMIDE HCL [Concomitant]
  9. RANITIDINE HCL [Concomitant]
  10. CARBAMAZEPINE (IMMEDIATE RELEASE) [Concomitant]

REACTIONS (2)
  - HAEMATURIA [None]
  - INTERNATIONAL NORMALISED RATIO INCREASED [None]
